FAERS Safety Report 19136474 (Version 1)
Quarter: 2021Q2

REPORT INFORMATION
  Report Type: Report from Study
  Country: None (occurrence: GR)
  Receive Date: 20210415
  Receipt Date: 20210415
  Transmission Date: 20210717
  Serious: Yes (Other)
  Sender: FDA-Public Use
  Company Number: GR-ABBVIE-21K-066-3856600-00

PATIENT
  Age: 47 Year
  Sex: Female
  Weight: 90 kg

DRUGS (30)
  1. CAELYX [Suspect]
     Active Substance: DOXORUBICIN HYDROCHLORIDE
     Indication: MYELOSUPPRESSION
     Dosage: 2ND CYCLE
     Route: 042
     Dates: start: 20200220
  2. CAELYX [Suspect]
     Active Substance: DOXORUBICIN HYDROCHLORIDE
     Dosage: 1ST CYCLE
     Route: 042
     Dates: start: 20200117
  3. RITUXIMAB. [Suspect]
     Active Substance: RITUXIMAB
     Dosage: 3RD CYCLE
     Route: 058
     Dates: start: 20200318
  4. POLATUZUMAB VEDOTIN. [Suspect]
     Active Substance: POLATUZUMAB VEDOTIN
     Dosage: 2 VIALS, 1ST CYCLE
     Route: 042
     Dates: start: 20200116
  5. IMBRUVICA [Suspect]
     Active Substance: IBRUTINIB
     Dosage: 19/FEB/2020 (2ND CYCLE)
     Route: 048
     Dates: start: 20200219
  6. CAELYX [Suspect]
     Active Substance: DOXORUBICIN HYDROCHLORIDE
     Dosage: 2ND CYCLE
     Route: 042
     Dates: start: 20200219
  7. RITUXIMAB. [Suspect]
     Active Substance: RITUXIMAB
     Indication: DIFFUSE LARGE B-CELL LYMPHOMA
     Dosage: 1ST CYCLE
     Route: 042
     Dates: start: 20200115
  8. CYCLOPHOSPHAMIDE. [Suspect]
     Active Substance: CYCLOPHOSPHAMIDE
     Route: 042
     Dates: start: 20200116
  9. BENDAMUSTINE HYDROCHLORIDE. [Suspect]
     Active Substance: BENDAMUSTINE HYDROCHLORIDE
     Dosage: 3RD CYCLE
     Route: 042
     Dates: start: 20200318
  10. VALTREX [Concomitant]
     Active Substance: VALACYCLOVIR HYDROCHLORIDE
     Indication: PRODUCT USED FOR UNKNOWN INDICATION
     Dosage: 1X2
     Route: 065
  11. POLATUZUMAB VEDOTIN. [Suspect]
     Active Substance: POLATUZUMAB VEDOTIN
     Indication: DIFFUSE LARGE B-CELL LYMPHOMA
     Route: 042
     Dates: start: 20200219
  12. POLATUZUMAB VEDOTIN. [Suspect]
     Active Substance: POLATUZUMAB VEDOTIN
     Dosage: 3RD CYCLE
     Route: 042
     Dates: start: 20200318
  13. BENDAMUSTINE HYDROCHLORIDE. [Suspect]
     Active Substance: BENDAMUSTINE HYDROCHLORIDE
     Dosage: 1ST CYCLE
     Route: 042
     Dates: start: 20200116
  14. BENDAMUSTINE HYDROCHLORIDE. [Suspect]
     Active Substance: BENDAMUSTINE HYDROCHLORIDE
     Dosage: 1ST CYCLE
     Route: 042
     Dates: start: 20200117
  15. BENDAMUSTINE HYDROCHLORIDE. [Suspect]
     Active Substance: BENDAMUSTINE HYDROCHLORIDE
     Dosage: 2ND CYCLE
     Route: 042
     Dates: start: 20200220
  16. BACTRIMEL [Concomitant]
     Active Substance: SULFAMETHOXAZOLE\TRIMETHOPRIM
     Indication: PRODUCT USED FOR UNKNOWN INDICATION
     Dosage: TB (800+160MG) 1X2 EVERY MONDAY?WEDNESDAY?FRIDAY
  17. VINCRISTINE [Suspect]
     Active Substance: VINCRISTINE
     Dosage: 1ST CYCLE
     Route: 042
     Dates: start: 20200116
  18. CYCLOPHOSPHAMIDE. [Suspect]
     Active Substance: CYCLOPHOSPHAMIDE
     Dosage: 2ND CYCLE
     Route: 042
     Dates: start: 20200219
  19. CYCLOPHOSPHAMIDE. [Suspect]
     Active Substance: CYCLOPHOSPHAMIDE
     Route: 042
     Dates: start: 20200220
  20. CAELYX [Suspect]
     Active Substance: DOXORUBICIN HYDROCHLORIDE
     Dosage: 1ST CYCLE
     Route: 042
     Dates: start: 20200116
  21. VINCRISTINE [Suspect]
     Active Substance: VINCRISTINE
     Indication: MYELOSUPPRESSION
     Dosage: 2ND CYCLE
     Route: 042
     Dates: start: 20200219
  22. VINCRISTINE [Suspect]
     Active Substance: VINCRISTINE
     Dosage: 2ND CYCLE
     Route: 042
     Dates: start: 20200220
  23. VINCRISTINE [Suspect]
     Active Substance: VINCRISTINE
     Dosage: 1ST CYCLE
     Route: 042
     Dates: start: 20200117
  24. IMBRUVICA [Suspect]
     Active Substance: IBRUTINIB
     Dosage: 18/MAR/2020 (3RD CYCLE)
     Route: 048
     Dates: start: 20200318
  25. IMBRUVICA [Suspect]
     Active Substance: IBRUTINIB
     Dosage: 29/APR/2020 (4TH CYCLE)
     Route: 048
     Dates: start: 20200429
  26. IMBRUVICA [Suspect]
     Active Substance: IBRUTINIB
     Indication: DIFFUSE LARGE B-CELL LYMPHOMA
     Dosage: 2VIALS, 1ST CYCLE
     Route: 048
     Dates: start: 20200116
  27. RITUXIMAB. [Suspect]
     Active Substance: RITUXIMAB
     Dosage: 2ND CYCLE
     Route: 058
     Dates: start: 20200219
  28. CYCLOPHOSPHAMIDE. [Suspect]
     Active Substance: CYCLOPHOSPHAMIDE
     Indication: MYELOSUPPRESSION
     Dosage: 1ST CYCLE
     Route: 042
     Dates: start: 20200117
  29. BENDAMUSTINE HYDROCHLORIDE. [Suspect]
     Active Substance: BENDAMUSTINE HYDROCHLORIDE
     Indication: DIFFUSE LARGE B-CELL LYMPHOMA
     Dosage: 2ND CYCLE
     Route: 042
     Dates: start: 20200219
  30. METFORMIN [Concomitant]
     Active Substance: METFORMIN HYDROCHLORIDE
     Indication: TYPE 2 DIABETES MELLITUS
     Dosage: 1X2/DAY
     Route: 065

REACTIONS (5)
  - Product use in unapproved indication [Unknown]
  - Off label use [Unknown]
  - Neutropenia [Recovered/Resolved]
  - Thrombocytopenia [Recovered/Resolved]
  - Leukopenia [Recovered/Resolved]

NARRATIVE: CASE EVENT DATE: 20200116
